FAERS Safety Report 13887948 (Version 1)
Quarter: 2017Q3

REPORT INFORMATION
  Report Type: Spontaneous
  Country: CN (occurrence: CN)
  Receive Date: 20170821
  Receipt Date: 20170821
  Transmission Date: 20171127
  Serious: Yes (Other)
  Sender: FDA-Public Use
  Company Number: CN-BAYER-2017-154991

PATIENT
  Age: 42 Year
  Sex: Male

DRUGS (2)
  1. IODINE (131 I) [Suspect]
     Active Substance: SODIUM IODIDE I-131
  2. NEXAVAR [Suspect]
     Active Substance: SORAFENIB

REACTIONS (2)
  - Hepatic cancer recurrent [Recovered/Resolved]
  - Tumour embolism [None]
